FAERS Safety Report 23719400 (Version 1)
Quarter: 2024Q2

REPORT INFORMATION
  Report Type: Spontaneous
  Country: US (occurrence: US)
  Receive Date: 20240408
  Receipt Date: 20240408
  Transmission Date: 20240715
  Serious: No
  Sender: FDA-Public Use
  Company Number: US-Amarin Pharma  Inc-2024AMR000024

PATIENT
  Age: 60 Year
  Sex: Male

DRUGS (4)
  1. VASCEPA [Suspect]
     Active Substance: ICOSAPENT ETHYL
     Indication: Blood cholesterol increased
     Dosage: 2G PER DAY
     Route: 048
  2. VALSARTAN [Concomitant]
     Active Substance: VALSARTAN
  3. ROSUVASTATIN [Concomitant]
     Active Substance: ROSUVASTATIN
  4. CHOLECALCIFEROL [Concomitant]
     Active Substance: CHOLECALCIFEROL
     Indication: Product used for unknown indication

REACTIONS (6)
  - Psoriasis [Unknown]
  - Blood testosterone decreased [Unknown]
  - Poor quality product administered [Unknown]
  - Intentional underdose [Unknown]
  - Product physical issue [Unknown]
  - Product colour issue [Unknown]
